FAERS Safety Report 8469534-7 (Version None)
Quarter: 2012Q2

REPORT INFORMATION
  Report Type: 
  Country: None (occurrence: None)
  Receive Date: 20120626
  Receipt Date: 20120619
  Transmission Date: 20120825
  Serious: Yes (Hospitalization)
  Sender: FDA-Public Use
  Company Number: DE-JNJFOC-20120609766

PATIENT
  Sex: Female

DRUGS (17)
  1. CYCLOPHOSPHAMIDE [Suspect]
     Indication: B-CELL LYMPHOMA
     Dosage: 1493 M
     Route: 042
     Dates: start: 20120426
  2. NEULASTA [Suspect]
     Indication: B-CELL LYMPHOMA
     Route: 058
     Dates: start: 20120429
  3. RITUXIMAB [Suspect]
     Indication: B-CELL LYMPHOMA
     Route: 065
     Dates: start: 20120425
  4. DOXORUBICIN HCL [Suspect]
     Indication: B-CELL LYMPHOMA
     Route: 042
     Dates: start: 20120426
  5. SIMVASTATIN [Concomitant]
     Route: 065
     Dates: start: 20120412
  6. LEVOTHYROXINE [Concomitant]
     Route: 065
     Dates: start: 20120412
  7. RAMIPRIL [Concomitant]
     Route: 065
     Dates: start: 20120412
  8. ACYCLOVIR [Concomitant]
     Route: 065
     Dates: start: 20120412
  9. ACETYLSALICYLIC ACID SRT [Concomitant]
     Route: 065
     Dates: start: 20120412
  10. PREDNISOLONE [Suspect]
     Indication: B-CELL LYMPHOMA
     Route: 065
     Dates: start: 20120426, end: 20120430
  11. ENOXAPARIN SODIUM [Concomitant]
     Route: 065
     Dates: start: 20120412
  12. TIOTROPIUM BROMIDE [Concomitant]
     Route: 065
     Dates: start: 20120412
  13. TRIMETHOPRIM + SULFAMETHOXAZOLE [Concomitant]
     Route: 065
     Dates: start: 20120412
  14. VINCRISTINE [Suspect]
     Indication: B-CELL LYMPHOMA
     Dosage: 3.94 M
     Route: 065
     Dates: start: 20120426
  15. TORSEMIDE [Concomitant]
     Route: 065
     Dates: start: 20120412
  16. PANTOPRAZOLE [Concomitant]
     Route: 065
     Dates: start: 20120412
  17. NEBIVOLOL [Concomitant]
     Route: 065
     Dates: start: 20120412

REACTIONS (4)
  - SEPSIS [None]
  - SYNCOPE [None]
  - HYPOTENSION [None]
  - NEUTROPENIA [None]
